FAERS Safety Report 21359956 (Version 1)
Quarter: 2022Q3

REPORT INFORMATION
  Report Type: Spontaneous
  Country: PT (occurrence: None)
  Receive Date: 20220921
  Receipt Date: 20220921
  Transmission Date: 20221026
  Serious: Yes (Other)
  Sender: FDA-Public Use
  Company Number: 2022A316752

PATIENT
  Age: 66 Year
  Sex: Female

DRUGS (1)
  1. IMFINZI [Suspect]
     Active Substance: DURVALUMAB
     Indication: Lung adenocarcinoma stage III
     Dosage: 670.0MG EVERY CYCLE
     Route: 042
     Dates: start: 20220414, end: 20220721

REACTIONS (1)
  - Organising pneumonia [Unknown]
